FAERS Safety Report 24529539 (Version 1)
Quarter: 2024Q4

REPORT INFORMATION
  Report Type: Spontaneous
  Country: US (occurrence: US)
  Receive Date: 20241021
  Receipt Date: 20241021
  Transmission Date: 20250115
  Serious: No
  Sender: FRESENIUS KABI
  Company Number: US-FreseniusKabi-FK202415299

PATIENT
  Age: 68 Year
  Sex: Female
  Weight: 62.14 kg

DRUGS (1)
  1. SENSORCAINE WITH EPINEPHRINE [Suspect]
     Active Substance: BUPIVACAINE HYDROCHLORIDE\EPINEPHRINE BITARTRATE
     Indication: Local anaesthesia
     Dosage: FORM OF ADMINISTRATION: INJECTION?2.5 ML INTERVALS OF THIS PRODUCT WAS USED PER PATIENT?PROCEDURE: M
     Dates: start: 20240909

REACTIONS (2)
  - Drug ineffective [Unknown]
  - Haemorrhage [Unknown]

NARRATIVE: CASE EVENT DATE: 20240909
